FAERS Safety Report 23873788 (Version 1)
Quarter: 2024Q2

REPORT INFORMATION
  Report Type: Spontaneous
  Country: US (occurrence: None)
  Receive Date: 20240517
  Receipt Date: 20240517
  Transmission Date: 20240716
  Serious: No
  Sender: FDA-Public Use
  Company Number: None

PATIENT
  Age: 45 Year
  Sex: Female

DRUGS (3)
  1. OPSUMIT [Suspect]
     Active Substance: MACITENTAN
     Indication: Pulmonary arterial hypertension
     Dosage: 10MG DAILY ORAL?
     Route: 048
     Dates: start: 202311
  2. SILDENAFIL [Concomitant]
     Active Substance: SILDENAFIL
  3. ORENITRAM [Concomitant]

REACTIONS (2)
  - Hospitalisation [None]
  - Therapy change [None]

NARRATIVE: CASE EVENT DATE: 20240412
